FAERS Safety Report 6166286-0 (Version None)
Quarter: 2009Q2

REPORT INFORMATION
  Report Type: 
  Country: None (occurrence: None)
  Receive Date: 20090422
  Receipt Date: 20090422
  Transmission Date: 20091009
  Serious: No
  Sender: FDA-Public Use
  Company Number: None

PATIENT
  Age: 72 Year
  Sex: Male
  Weight: 114.76 kg

DRUGS (2)
  1. AMLODIPINE [Suspect]
     Indication: ATRIAL FIBRILLATION
     Dosage: 10MG 1 PO QD ORAL
     Route: 048
     Dates: start: 20080901
  2. AMLODIPINE [Suspect]
     Indication: HYPERTENSION
     Dosage: 10MG 1 PO QD ORAL
     Route: 048
     Dates: start: 20080901

REACTIONS (3)
  - BLOOD PRESSURE INADEQUATELY CONTROLLED [None]
  - DRUG INEFFECTIVE [None]
  - PRODUCT SUBSTITUTION ISSUE [None]
